FAERS Safety Report 20171102 (Version 1)
Quarter: 2021Q4

REPORT INFORMATION
  Report Type: Spontaneous
  Country: US (occurrence: None)
  Receive Date: 20211210
  Receipt Date: 20211210
  Transmission Date: 20220303
  Serious: No
  Sender: FDA-Public Use
  Company Number: 2021A805655

PATIENT
  Age: 73 Year
  Sex: Female
  Weight: 66.2 kg

DRUGS (1)
  1. LYNPARZA [Suspect]
     Active Substance: OLAPARIB
     Indication: Ovarian cancer
     Route: 048
     Dates: start: 20210815

REACTIONS (4)
  - Amnesia [Not Recovered/Not Resolved]
  - Agitation [Not Recovered/Not Resolved]
  - Paranoia [Not Recovered/Not Resolved]
  - Blood potassium decreased [Unknown]

NARRATIVE: CASE EVENT DATE: 20210101
